FAERS Safety Report 8301822 (Version 3)
Quarter: 2013Q2

REPORT INFORMATION
  Report Type: Spontaneous
  Country: US (occurrence: US)
  Receive Date: 20111220
  Receipt Date: 20130610
  Transmission Date: 20140414
  Serious: Yes (Hospitalization)
  Sender: FDA-Public Use
  Company Number: US-GLAXOSMITHKLINE-A0898887A

PATIENT
  Sex: Female

DRUGS (8)
  1. PROPAFENONE HYDROCHLORIDE [Suspect]
     Indication: ATRIAL FIBRILLATION
  2. RYTHMOL [Suspect]
     Indication: ARRHYTHMIA
     Dosage: 150MG UNKNOWN
     Route: 065
     Dates: start: 1994
  3. CARDIZEM [Concomitant]
  4. IMDUR [Concomitant]
  5. PLAVIX [Concomitant]
  6. ASPIRIN [Concomitant]
  7. MAGNESIUM [Concomitant]
  8. VITAMINS [Concomitant]

REACTIONS (8)
  - Drug ineffective [Recovered/Resolved]
  - Performance status decreased [Unknown]
  - Arrhythmia [Unknown]
  - Overdose [Unknown]
  - Dyspnoea [Unknown]
  - Atrial fibrillation [Unknown]
  - Abasia [Unknown]
  - Product quality issue [Unknown]
